FAERS Safety Report 7388543-2 (Version None)
Quarter: 2011Q2

REPORT INFORMATION
  Report Type: 
  Country: None (occurrence: None)
  Receive Date: 20110401
  Receipt Date: 20110331
  Transmission Date: 20111010
  Serious: Yes (Other)
  Sender: FDA-Public Use
  Company Number: CN-PFIZER INC-2011068973

PATIENT
  Age: 72 Year
  Sex: Male

DRUGS (1)
  1. GLUCOTROL [Suspect]
     Indication: DIABETES MELLITUS
     Dosage: 15 MG, DAILY
     Route: 048
     Dates: start: 20110317, end: 20110323

REACTIONS (5)
  - OCULAR DISCOMFORT [None]
  - VISION BLURRED [None]
  - EYE OEDEMA [None]
  - DRUG HYPERSENSITIVITY [None]
  - EYE PAIN [None]
